FAERS Safety Report 8847623 (Version 2)
Quarter: 2013Q3

REPORT INFORMATION
  Report Type: Spontaneous
  Country: US (occurrence: US)
  Receive Date: 20121018
  Receipt Date: 20130819
  Transmission Date: 20140515
  Serious: Yes (Other)
  Sender: FDA-Public Use
  Company Number: CHPA2012US020052

PATIENT
  Age: 62 Year
  Sex: Male

DRUGS (3)
  1. EXCEDRIN MIGRAINE [Suspect]
     Indication: BACK PAIN
     Dosage: 2 DF, Q4H
     Route: 048
     Dates: start: 1992
  2. EXCEDRIN EXTRA STRENGTH [Suspect]
     Indication: BACK PAIN
     Dosage: 8 DF, QD
     Route: 048
     Dates: start: 1993
  3. ALKA SELTZER ORIGINAL [Concomitant]

REACTIONS (4)
  - Intervertebral disc protrusion [Recovered/Resolved]
  - Cyst [Recovered/Resolved]
  - Spinal cord injury [Recovered/Resolved]
  - Swelling [Recovered/Resolved]
